FAERS Safety Report 7501399-X (Version None)
Quarter: 2011Q2

REPORT INFORMATION
  Report Type: 
  Country: None (occurrence: None)
  Receive Date: 20110524
  Receipt Date: 20110512
  Transmission Date: 20111010
  Serious: No
  Sender: FDA-Public Use
  Company Number: US-BAYER-2011-041070

PATIENT
  Sex: Female

DRUGS (2)
  1. MIRENA [Suspect]
     Dosage: 20 ?G, CONT
     Route: 015
     Dates: end: 20110401
  2. MIRENA [Suspect]
     Indication: CONTRACEPTION
     Dosage: 20 ?G, CONT
     Route: 015
     Dates: start: 20110401

REACTIONS (5)
  - PREGNANCY WITH CONTRACEPTIVE DEVICE [None]
  - BREAST TENDERNESS [None]
  - HYPOMENORRHOEA [None]
  - POST PROCEDURAL HAEMORRHAGE [None]
  - METRORRHAGIA [None]
